FAERS Safety Report 6540216-1 (Version None)
Quarter: 2010Q1

REPORT INFORMATION
  Report Type: 
  Country: None (occurrence: None)
  Receive Date: 20100115
  Receipt Date: 20100107
  Transmission Date: 20100710
  Serious: Yes (Other)
  Sender: FDA-Public Use
  Company Number: FR-ASTRAZENECA-2009SE14407

PATIENT
  Age: 73 Year
  Sex: Male

DRUGS (3)
  1. NEXIUM [Suspect]
     Indication: BARRETT'S OESOPHAGUS
     Route: 048
     Dates: start: 20020201
  2. PLAVIX [Concomitant]
     Route: 065
  3. FENOFIBRATE [Concomitant]
     Route: 065

REACTIONS (1)
  - POLYNEUROPATHY [None]
